FAERS Safety Report 6282767-3 (Version None)
Quarter: 2009Q3

REPORT INFORMATION
  Report Type: 
  Country: None (occurrence: None)
  Receive Date: 20090724
  Receipt Date: 20090714
  Transmission Date: 20100115
  Serious: Yes (Life-Threatening, Hospitalization, Other)
  Sender: FDA-Public Use
  Company Number: JP-PFIZER INC-2009233761

PATIENT
  Age: 78 Year

DRUGS (6)
  1. ZOLOFT [Suspect]
     Indication: DEPRESSION
     Dosage: 25 MG, UNK
     Route: 048
     Dates: start: 20090616, end: 20090618
  2. PAXIL [Suspect]
     Indication: DEPRESSION
     Route: 048
     Dates: start: 20090528, end: 20090610
  3. LENDORMIN [Concomitant]
  4. ZYPREXA [Concomitant]
     Route: 048
     Dates: start: 20090616, end: 20090618
  5. BROTIZOLAM [Concomitant]
     Route: 048
     Dates: start: 20090616, end: 20090618
  6. SEPAZON [Concomitant]
     Route: 048
     Dates: start: 20090616, end: 20090618

REACTIONS (5)
  - ANXIETY [None]
  - DELUSION [None]
  - IMPULSIVE BEHAVIOUR [None]
  - PSYCHOMOTOR HYPERACTIVITY [None]
  - SELF INJURIOUS BEHAVIOUR [None]
